FAERS Safety Report 6147180-8 (Version None)
Quarter: 2009Q2

REPORT INFORMATION
  Report Type: 
  Country: None (occurrence: None)
  Receive Date: 20090403
  Receipt Date: 20090324
  Transmission Date: 20091009
  Serious: Yes (Hospitalization)
  Sender: FDA-Public Use
  Company Number: GXKR2009US03837

PATIENT
  Age: 72 Year
  Sex: Female

DRUGS (9)
  1. DOXORUBICIN HCL [Suspect]
     Indication: DIFFUSE LARGE B-CELL LYMPHOMA STAGE II
     Dosage: 50 MG/M2 (ON DAY 1), 1 CYCLE, INTRAVENOUS; 20% REDUCED DOSE, INTRAVENOUS
     Route: 042
  2. VINCRISTINE [Suspect]
     Indication: DIFFUSE LARGE B-CELL LYMPHOMA STAGE II
     Dosage: 1 MG (ON DAY 1), 1 CYCLE, INTRAVENOUS; 20 % REDUCED DOSE, INTRAVENOUS
     Route: 042
  3. PREDNISONE TAB [Suspect]
     Indication: DIFFUSE LARGE B-CELL LYMPHOMA STAGE II
     Dosage: 100 MG (ON DAYS 1-5), 1 CYCLE, ORAL; 20 % REDUCED DOSE, ORAL
     Route: 048
  4. RITUXIMAB (RITUXIMAB) [Suspect]
     Indication: DIFFUSE LARGE B-CELL LYMPHOMA STAGE II
     Dosage: 375 MG/M2, (ON DAY 1), 1 CYCLE, INTRAVENOUS; 20 % REDUCED DOSE, INTRAVENOUS
     Route: 042
  5. CYCLOPHOSPHAMIDE [Suspect]
     Indication: DIFFUSE LARGE B-CELL LYMPHOMA STAGE II
     Dosage: 750 MG/M2, (ON DAY 1), 1 CYCLE, INTRAVENOUS; 20 % REDUCED DOSE, INTRAVENOUS
     Route: 042
  6. LISINOPRIL [Concomitant]
  7. LEVOTHYROXINE SODIUM [Concomitant]
  8. PEGFILGRASTIM (PEGFILGRASTIM) INJECTION [Concomitant]
  9. ALLOPURINOL [Concomitant]

REACTIONS (8)
  - BLOOD PRESSURE DECREASED [None]
  - CATHETER BACTERAEMIA [None]
  - FATIGUE [None]
  - FEBRILE NEUTROPENIA [None]
  - HAEMOGLOBIN DECREASED [None]
  - NAUSEA [None]
  - STAPHYLOCOCCAL BACTERAEMIA [None]
  - WHITE BLOOD CELL COUNT DECREASED [None]
